FAERS Safety Report 18441205 (Version 1)
Quarter: 2020Q4

REPORT INFORMATION
  Report Type: Spontaneous
  Country: CN (occurrence: CN)
  Receive Date: 20201029
  Receipt Date: 20201029
  Transmission Date: 20210114
  Serious: Yes (Other)
  Sender: FDA-Public Use
  Company Number: CN-ROCHE-2702543

PATIENT
  Age: 51 Year
  Sex: Female
  Weight: 47 kg

DRUGS (12)
  1. HERCEPTIN [Suspect]
     Active Substance: TRASTUZUMAB
     Route: 065
     Dates: start: 20200908
  2. PERJETA [Suspect]
     Active Substance: PERTUZUMAB
     Indication: BREAST CANCER
     Dosage: ON 08 JUL 2020, 04 AUG 2020, 08 SEP 2020
     Route: 065
     Dates: start: 20200708
  3. DOCETAXEL. [Concomitant]
     Active Substance: DOCETAXEL
     Indication: BREAST CANCER
     Dates: start: 20200612
  4. DOCETAXEL. [Concomitant]
     Active Substance: DOCETAXEL
     Indication: METASTASES TO LYMPH NODES
  5. HERCEPTIN [Suspect]
     Active Substance: TRASTUZUMAB
     Indication: METASTASES TO LYMPH NODES
     Dosage: ON 08 JUL 2020, 04 AUG 2020, 08 SEP 2020
     Route: 065
     Dates: start: 20200708
  6. HERCEPTIN [Suspect]
     Active Substance: TRASTUZUMAB
     Indication: BREAST CANCER
     Route: 065
     Dates: start: 20200804
  7. PERJETA [Suspect]
     Active Substance: PERTUZUMAB
     Indication: METASTASES TO LYMPH NODES
     Route: 065
     Dates: start: 20200804
  8. PACLITAXEL ALBUMIN [Concomitant]
     Active Substance: PACLITAXEL
     Indication: METASTASES TO LYMPH NODES
  9. CARBOPLATIN. [Concomitant]
     Active Substance: CARBOPLATIN
     Indication: METASTASES TO LYMPH NODES
  10. PERJETA [Suspect]
     Active Substance: PERTUZUMAB
     Route: 065
     Dates: start: 20200908
  11. CARBOPLATIN. [Concomitant]
     Active Substance: CARBOPLATIN
     Indication: BREAST CANCER
     Dosage: ON 08 JUL 2020, 04 AUG 2020, 08 SEP 2020
  12. PACLITAXEL ALBUMIN [Concomitant]
     Active Substance: PACLITAXEL
     Indication: BREAST CANCER
     Dosage: ON 08 JUL 2020, 04 AUG 2020, 08 SEP 2020

REACTIONS (2)
  - Myelosuppression [Unknown]
  - Neurotoxicity [Unknown]
